FAERS Safety Report 4436974-2 (Version None)
Quarter: 2004Q3

REPORT INFORMATION
  Report Type: 
  Country: None (occurrence: None)
  Receive Date: 20040830
  Receipt Date: 20040108
  Transmission Date: 20050211
  Serious: No
  Sender: FDA-Public Use
  Company Number: US-GLAXOSMITHKLINE-A0491993A

PATIENT
  Sex: Female

DRUGS (3)
  1. BECONASE [Suspect]
     Route: 045
  2. FLOVENT [Concomitant]
  3. UNIPHYL [Concomitant]

REACTIONS (1)
  - DRUG INEFFECTIVE [None]
